FAERS Safety Report 19643082 (Version 6)
Quarter: 2022Q1

REPORT INFORMATION
  Report Type: Report from Study
  Country: US (occurrence: US)
  Receive Date: 20210731
  Receipt Date: 20220119
  Transmission Date: 20220423
  Serious: Yes (Death)
  Sender: FDA-Public Use
  Company Number: NVSC2021US165482

PATIENT
  Sex: Male

DRUGS (1)
  1. COSENTYX [Suspect]
     Active Substance: SECUKINUMAB
     Indication: Psoriasis
     Dosage: 300 MG, (Q WEEKLY X 5 WEEKS THEN 300 MG, Q4W)
     Route: 058
     Dates: start: 20210524

REACTIONS (5)
  - Death [Fatal]
  - Pruritus [Unknown]
  - Skin exfoliation [Unknown]
  - Malaise [Unknown]
  - Respiratory disorder [Unknown]
